FAERS Safety Report 19086385 (Version 1)
Quarter: 2021Q2

REPORT INFORMATION
  Report Type: Other
  Country: US (occurrence: US)
  Receive Date: 20210402
  Receipt Date: 20210402
  Transmission Date: 20210717
  Serious: Yes (Hospitalization)
  Sender: FDA-Public Use
  Company Number: US-ROCHE-2617658

PATIENT
  Sex: Female

DRUGS (2)
  1. ESBRIET [Suspect]
     Active Substance: PIRFENIDONE
     Indication: IDIOPATHIC PULMONARY FIBROSIS
     Dosage: TAKE 3 TABLET(S) BY MOUTH 3 TIMES A DAY
     Route: 048
  2. ESBRIET [Suspect]
     Active Substance: PIRFENIDONE
     Indication: IDIOPATHIC PULMONARY FIBROSIS
     Dosage: TAKE 3 CAPSULE(S) BY MOUTH 3 TIMES A DAY WITH MEAL
     Route: 048

REACTIONS (6)
  - General physical health deterioration [Unknown]
  - Vascular rupture [Unknown]
  - Cardiac disorder [Unknown]
  - Renal disorder [Unknown]
  - Eye contusion [Unknown]
  - Peripheral swelling [Unknown]
